FAERS Safety Report 6003021-0 (Version None)
Quarter: 2008Q4

REPORT INFORMATION
  Report Type: 
  Country: None (occurrence: None)
  Receive Date: 20081212
  Receipt Date: 20081204
  Transmission Date: 20090506
  Serious: Yes (Death, Other)
  Sender: FDA-Public Use
  Company Number: 100#08#2008-05967

PATIENT
  Age: 27 Year
  Sex: Male

DRUGS (1)
  1. METHOTREXATE [Suspect]
     Dosage: 3500 MG/M2
     Route: 042

REACTIONS (9)
  - ATAXIA [None]
  - DISEASE PROGRESSION [None]
  - HALLUCINATION, VISUAL [None]
  - MENINGORADICULITIS [None]
  - NEUROTOXICITY [None]
  - QUADRIPARESIS [None]
  - REVERSIBLE POSTERIOR LEUKOENCEPHALOPATHY SYNDROME [None]
  - SLEEP DISORDER [None]
  - VISUAL IMPAIRMENT [None]
